APPROVED DRUG PRODUCT: FLUDEOXYGLUCOSE F18
Active Ingredient: FLUDEOXYGLUCOSE F-18
Strength: 10-100mCi/ML **Federal Register determination that product was not discontinued or withdrawn for safety or effectiveness reasons**
Dosage Form/Route: INJECTABLE;INTRAVENOUS
Application: N021768 | Product #001
Applicant: WEILL MEDICAL COLLEGE CORNELL UNIV
Approved: Aug 5, 2004 | RLD: Yes | RS: No | Type: DISCN